FAERS Safety Report 8825656 (Version 1)
Quarter: 2012Q4

REPORT INFORMATION
  Report Type: 
  Country: US (occurrence: US)
  Receive Date: 20121004
  Receipt Date: 20121004
  Transmission Date: 20130627
  Serious: No
  Sender: FDA-Public Use
  Company Number: US-VERTEX PHARMACEUTICAL INC.-2012-021252

PATIENT
  Age: 55 Year
  Sex: Male
  Weight: 71 kg

DRUGS (18)
  1. VX-950 [Suspect]
     Indication: HEPATITIS C
     Dosage: 750 mg, tid
     Route: 048
     Dates: start: 20120911
  2. RIBAPAK [Concomitant]
     Indication: HEPATITIS C
     Dosage: 2 DF, bid
     Dates: start: 20120911
  3. HYDRALAZINE [Concomitant]
     Dosage: 25 mg, qd
  4. METOLAZONE [Concomitant]
     Dosage: 5 mg, qd
  5. CO Q-10 [Concomitant]
     Dosage: 100 mg, qd
  6. VITAMIN E                          /00110501/ [Concomitant]
     Dosage: 400 ut, qd
  7. FISH OIL [Concomitant]
     Dosage: 1200 mg, qd
  8. MELATONIN [Concomitant]
     Dosage: 3 mg, qd
  9. B-COMPLEX                          /00003501/ [Concomitant]
     Dosage: UNK, qd
  10. LANTUS SOLOSTAR [Concomitant]
     Dosage: 12 ut, qd
  11. DOXAZOSIN MESYLATE [Concomitant]
     Dosage: 2 mg, qd
  12. OMEPRAZOLE [Concomitant]
     Dosage: 20 mg, qd
  13. NOVOLOG [Concomitant]
     Dosage: 5 ut, UNK
  14. CLONIDINE [Concomitant]
     Dosage: 1mg/day, weekly
  15. DIOVAN [Concomitant]
     Dosage: 320 mg, qd
  16. TORSEMIDE [Concomitant]
     Dosage: UNK, qd
  17. AMLODIPINE BESYLATE [Concomitant]
     Dosage: UNK UNK, qd
  18. LABETALOL HCL [Concomitant]
     Dosage: UNK, bid

REACTIONS (2)
  - Headache [Unknown]
  - Nausea [Unknown]
